FAERS Safety Report 8867230 (Version 1)
Quarter: 2012Q4

REPORT INFORMATION
  Report Type: 
  Country: US (occurrence: US)
  Receive Date: 20121025
  Receipt Date: 20121025
  Transmission Date: 20130627
  Serious: No
  Sender: FDA-Public Use
  Company Number: US-AMGEN-USASP2012015707

PATIENT
  Age: 63 Year
  Sex: Female
  Weight: 58.05 kg

DRUGS (7)
  1. ENBREL [Suspect]
     Indication: RHEUMATOID ARTHRITIS
     Dosage: 50 mg, qwk
     Route: 058
  2. VICODIN [Concomitant]
     Dosage: 500 mg, UNK
     Route: 048
  3. TRAMADOL HCL [Concomitant]
     Dosage: 50 mg, UNK
     Route: 048
  4. PREDNISONE [Concomitant]
     Dosage: 10 mg, UNK
     Route: 048
  5. EFFEXOR [Concomitant]
     Dosage: 25 mg, UNK
     Route: 048
  6. ZEBETA [Concomitant]
     Dosage: 10 mg, UNK
     Route: 048
  7. AMLODIPINE BENAZEPRIL [Concomitant]
     Dosage: 20 mg, UNK
     Route: 048

REACTIONS (1)
  - Therapeutic response decreased [Unknown]
